FAERS Safety Report 24056025 (Version 5)
Quarter: 2025Q2

REPORT INFORMATION
  Report Type: Spontaneous
  Country: FR (occurrence: FR)
  Receive Date: 20240705
  Receipt Date: 20250516
  Transmission Date: 20250717
  Serious: No
  Sender: PFIZER
  Company Number: FR-PFIZER INC-202400107261

PATIENT
  Age: 63 Year
  Sex: Female

DRUGS (1)
  1. ENBREL [Suspect]
     Active Substance: ETANERCEPT

REACTIONS (1)
  - Device mechanical issue [Unknown]
